FAERS Safety Report 6994970-5 (Version None)
Quarter: 2010Q3

REPORT INFORMATION
  Report Type: 
  Country: None (occurrence: None)
  Receive Date: 20100917
  Receipt Date: 20081218
  Transmission Date: 20110219
  Serious: Yes (Other)
  Sender: FDA-Public Use
  Company Number: HQWYE498503MAY05

PATIENT
  Sex: Female

DRUGS (6)
  1. PREMPRO [Suspect]
     Dosage: UNKNOWN
     Route: 048
     Dates: start: 19970211, end: 20020822
  2. MEDROXYPROGESTERONE ACETATE [Suspect]
  3. PROVERA [Suspect]
  4. ESTRATEST [Suspect]
  5. COMBIPATCH [Suspect]
  6. PREMARIN [Suspect]

REACTIONS (1)
  - BREAST CANCER [None]
